FAERS Safety Report 6078653-4 (Version None)
Quarter: 2009Q1

REPORT INFORMATION
  Report Type: 
  Country: None (occurrence: None)
  Receive Date: 20090216
  Receipt Date: 20090206
  Transmission Date: 20090719
  Serious: Yes (Other)
  Sender: FDA-Public Use
  Company Number: PHEH2009US01505

PATIENT
  Sex: Male
  Weight: 57.3 kg

DRUGS (2)
  1. GLEEVEC [Suspect]
     Indication: GASTROINTESTINAL STROMAL TUMOUR
     Dosage: 300 MG, BID
     Route: 048
     Dates: start: 20010204, end: 20090202
  2. ENTECAVIR [Concomitant]
     Dosage: 0.5 MG PO Q3DAY
     Route: 048
     Dates: start: 20070301

REACTIONS (2)
  - HEPATITIS B [None]
  - MALIGNANT NEOPLASM PROGRESSION [None]
